FAERS Safety Report 19019670 (Version 2)
Quarter: 2021Q1

REPORT INFORMATION
  Report Type: Spontaneous
  Country: US (occurrence: US)
  Receive Date: 20210316
  Receipt Date: 20210329
  Transmission Date: 20210420
  Serious: Yes (Other)
  Sender: FDA-Public Use
  Company Number: US-AMAG PHARMACEUTICALS, INC.-AMAG202100849

PATIENT
  Age: 81 Year
  Sex: Male

DRUGS (1)
  1. FERAHEME [Suspect]
     Active Substance: FERUMOXYTOL NON-STOICHIOMETRIC MAGNETITE
     Indication: PRODUCT USED FOR UNKNOWN INDICATION
     Dosage: FIRST DOSE, ADMIXED IN 100ML NS
     Route: 042
     Dates: start: 2021, end: 2021

REACTIONS (6)
  - Drooling [Unknown]
  - Anaphylactic reaction [Unknown]
  - Altered state of consciousness [Unknown]
  - Loss of consciousness [Unknown]
  - Vomiting [Unknown]
  - Pallor [Unknown]

NARRATIVE: CASE EVENT DATE: 2021
